FAERS Safety Report 25526369 (Version 1)
Quarter: 2025Q3

REPORT INFORMATION
  Report Type: Spontaneous
  Country: US (occurrence: US)
  Receive Date: 20250707
  Receipt Date: 20250707
  Transmission Date: 20251020
  Serious: No
  Sender: NOVARTIS
  Company Number: US-SANDOZ-SDZ2025US045569

PATIENT

DRUGS (2)
  1. CYCLOSPORINE [Suspect]
     Active Substance: CYCLOSPORINE
     Indication: Alopecia areata
     Route: 065
  2. METHOTREXATE [Suspect]
     Active Substance: METHOTREXATE
     Indication: Alopecia areata
     Route: 065

REACTIONS (1)
  - Adverse drug reaction [Unknown]
